FAERS Safety Report 15648225 (Version 3)
Quarter: 2018Q4

REPORT INFORMATION
  Report Type: Report from Study
  Country: BR (occurrence: BR)
  Receive Date: 20181122
  Receipt Date: 20181224
  Transmission Date: 20190205
  Serious: Yes (Other)
  Sender: FDA-Public Use
  Company Number: PHHY2018BR160219

PATIENT
  Sex: Male
  Weight: 110 kg

DRUGS (4)
  1. DIPYRONE [Concomitant]
     Active Substance: DIPYRONE
     Indication: PRODUCT USED FOR UNKNOWN INDICATION
     Route: 065
  2. COSENTYX [Suspect]
     Active Substance: SECUKINUMAB
     Indication: ANKYLOSING SPONDYLITIS
     Dosage: 150 MG, QW
     Route: 058
     Dates: start: 20181017
  3. COSENTYX [Suspect]
     Active Substance: SECUKINUMAB
     Dosage: 150 MG, QMO
     Route: 058
  4. METFORMIN [Concomitant]
     Active Substance: METFORMIN HYDROCHLORIDE
     Indication: PRODUCT USED FOR UNKNOWN INDICATION
     Dosage: 850 MG, UNK
     Route: 065

REACTIONS (10)
  - Malaise [Recovered/Resolved]
  - Dizziness [Recovered/Resolved]
  - Limb discomfort [Unknown]
  - Weight increased [Not Recovered/Not Resolved]
  - Nervousness [Unknown]
  - Nasopharyngitis [Unknown]
  - Musculoskeletal pain [Unknown]
  - Burning sensation [Unknown]
  - Pyrexia [Unknown]
  - Pain in extremity [Unknown]
